FAERS Safety Report 4595801-3 (Version None)
Quarter: 2005Q1

REPORT INFORMATION
  Report Type: 
  Country: None (occurrence: None)
  Receive Date: 20050224
  Receipt Date: 20050224
  Transmission Date: 20050727
  Serious: Yes (Hospitalization)
  Sender: FDA-Public Use
  Company Number: None

PATIENT
  Age: 33 Year
  Sex: Female
  Weight: 70.13 kg

DRUGS (1)
  1. PROMETHAZINE [Suspect]
     Indication: NAUSEA
     Dosage: 12.5MG EVERY 3HRS PRN INTRAVENOU
     Route: 042
     Dates: start: 20050205, end: 20050205

REACTIONS (4)
  - COMA [None]
  - HEADACHE [None]
  - SYNCOPE [None]
  - TACHYCARDIA [None]
